FAERS Safety Report 16172093 (Version 1)
Quarter: 2019Q2

REPORT INFORMATION
  Report Type: Report from Study
  Country: None (occurrence: BR)
  Receive Date: 20190409
  Receipt Date: 20190409
  Transmission Date: 20190711
  Serious: Yes (Death, Other)
  Sender: FDA-Public Use
  Company Number: BR-ABBVIE-19K-020-2734918-00

PATIENT

DRUGS (1)
  1. HUMIRA [Suspect]
     Active Substance: ADALIMUMAB
     Indication: PRODUCT USED FOR UNKNOWN INDICATION
     Route: 058

REACTIONS (8)
  - Injection site pain [Unknown]
  - Surgery [Unknown]
  - Death [Fatal]
  - Unevaluable event [Unknown]
  - Asthenia [Unknown]
  - Stress [Unknown]
  - Alopecia [Unknown]
  - Psoriasis [Unknown]
